FAERS Safety Report 16243524 (Version 2)
Quarter: 2019Q3

REPORT INFORMATION
  Report Type: Report from Study
  Country: JP (occurrence: JP)
  Receive Date: 20190426
  Receipt Date: 20190708
  Transmission Date: 20191004
  Serious: Yes (Death, Hospitalization)
  Sender: FDA-Public Use
  Company Number: JP-ACTELION-A-CH2017-160667

PATIENT
  Age: 68 Year
  Sex: Female

DRUGS (21)
  1. TRICHLORMETHIAZIDE [Concomitant]
     Active Substance: TRICHLORMETHIAZIDE
  2. LOXOPROFEN SODIUM HYDRATE [Concomitant]
     Active Substance: LOXOPROFEN SODIUM DIHYDRATE
  3. REVATIO [Concomitant]
     Active Substance: SILDENAFIL CITRATE
  4. AMITIZA [Concomitant]
     Active Substance: LUBIPROSTONE
  5. ADEMPAS [Concomitant]
     Active Substance: RIOCIGUAT
  6. LIVACT [Concomitant]
     Active Substance: AMINO ACIDS
  7. OPSUMIT [Suspect]
     Active Substance: MACITENTAN
     Indication: PULMONARY ARTERIAL HYPERTENSION
     Dosage: 10 MG, QD
     Route: 048
     Dates: start: 20160623, end: 20180227
  8. JU-KAMA [Concomitant]
     Active Substance: MAGNESIUM OXIDE
  9. WARFARIN [Concomitant]
     Active Substance: WARFARIN
  10. ASPARA POTASSIUM [Concomitant]
     Active Substance: POTASSIUM ASPARTATE
  11. OXYGEN. [Concomitant]
     Active Substance: OXYGEN
  12. SPIRONOLACTONE. [Concomitant]
     Active Substance: SPIRONOLACTONE
  13. POLAPREZINC [Concomitant]
     Active Substance: POLAPREZINC
  14. FUROSEMIDE. [Concomitant]
     Active Substance: FUROSEMIDE
  15. SLOW-K [Concomitant]
     Active Substance: POTASSIUM CHLORIDE
  16. ALLOPURINOL. [Concomitant]
     Active Substance: ALLOPURINOL
  17. GASMOTIN [Concomitant]
     Active Substance: MOSAPRIDE CITRATE
  18. TREPROST [Concomitant]
     Active Substance: TREPROSTINIL
  19. DIGOSIN [Concomitant]
     Active Substance: DIGOXIN
  20. NEXIUM [Concomitant]
     Active Substance: ESOMEPRAZOLE MAGNESIUM
  21. ADCIRCA [Concomitant]
     Active Substance: TADALAFIL

REACTIONS (12)
  - Decreased appetite [Fatal]
  - Colon cancer [Recovering/Resolving]
  - Cardio-respiratory arrest [Fatal]
  - Concomitant disease aggravated [Recovering/Resolving]
  - Hepatic failure [Fatal]
  - Large intestine polyp [Recovering/Resolving]
  - Iron deficiency anaemia [Recovering/Resolving]
  - Polypectomy [Unknown]
  - Abdominal cavity drainage [Recovering/Resolving]
  - Dyspnoea [Fatal]
  - Compression fracture [Recovering/Resolving]
  - Ascites [Recovering/Resolving]

NARRATIVE: CASE EVENT DATE: 20170202
